FAERS Safety Report 9324605 (Version 2)
Quarter: 2013Q2

REPORT INFORMATION
  Report Type: Report from Study
  Country: US (occurrence: US)
  Receive Date: 20130603
  Receipt Date: 20130617
  Transmission Date: 20140414
  Serious: Yes (Hospitalization)
  Sender: FDA-Public Use
  Company Number: US-ACTELION-A-NJ2012-71563

PATIENT
  Age: 63 Year
  Sex: Male

DRUGS (3)
  1. TRACLEER [Suspect]
     Indication: PULMONARY ARTERIAL HYPERTENSION
     Dosage: 125 MG, BID
     Route: 048
     Dates: start: 201208
  2. TRACLEER [Suspect]
     Dosage: 62.5 MG, BID
     Route: 048
     Dates: start: 201207, end: 201208
  3. COUMADIN [Concomitant]

REACTIONS (5)
  - Infection [Unknown]
  - Weight decreased [Unknown]
  - Diarrhoea [Unknown]
  - Hypotension [Recovered/Resolved]
  - Drug dose omission [Unknown]
